FAERS Safety Report 7501243-0 (Version None)
Quarter: 2011Q2

REPORT INFORMATION
  Report Type: 
  Country: None (occurrence: None)
  Receive Date: 20110524
  Receipt Date: 20110511
  Transmission Date: 20111010
  Serious: Yes (Other)
  Sender: FDA-Public Use
  Company Number: ES-UCBSA-031228

PATIENT
  Sex: Female

DRUGS (1)
  1. VIMPAT [Suspect]
     Indication: EPILEPSY
     Dosage: HIGH DOSES
     Route: 048
     Dates: end: 20110501

REACTIONS (4)
  - MUSCULAR WEAKNESS [None]
  - BLOOD LACTATE DEHYDROGENASE INCREASED [None]
  - FATIGUE [None]
  - BLOOD CREATINE PHOSPHOKINASE INCREASED [None]
